FAERS Safety Report 21877106 (Version 1)
Quarter: 2023Q1

REPORT INFORMATION
  Report Type: Spontaneous
  Country: CA (occurrence: CA)
  Receive Date: 20230118
  Receipt Date: 20230118
  Transmission Date: 20230418
  Serious: Yes (Other)
  Sender: FDA-Public Use
  Company Number: CA-BAXTER-2023BAX010614

PATIENT
  Age: 6 Year
  Sex: Male

DRUGS (5)
  1. CYCLOPHOSPHAMIDE [Suspect]
     Active Substance: CYCLOPHOSPHAMIDE
     Indication: Neuroblastoma recurrent
     Dosage: DOSAGE FORM: NOT SPECIFIED
     Route: 065
  2. ETOPOSIDE [Suspect]
     Active Substance: ETOPOSIDE
     Indication: Neuroblastoma recurrent
     Dosage: DOSAGE FORM: NOT SPECIFIED
     Route: 048
  3. LORBRENA [Suspect]
     Active Substance: LORLATINIB
     Indication: Neuroblastoma
     Dosage: 115.0 MG/M2, QD
     Route: 048
  4. TOPOTECAN HYDROCHLORIDE [Suspect]
     Active Substance: TOPOTECAN HYDROCHLORIDE
     Indication: Neuroblastoma recurrent
     Route: 065
  5. UNITUXIN [Suspect]
     Active Substance: DINUTUXIMAB
     Indication: Neuroblastoma recurrent
     Dosage: SINGLE USE VIAL, DOSAGE FORM: SOLUTION INTRAVENOUS
     Route: 041

REACTIONS (6)
  - Gastrointestinal toxicity [Unknown]
  - Neuroblastoma [Unknown]
  - Off label use [Unknown]
  - Metastases to lung [Unknown]
  - Diarrhoea [Unknown]
  - Immunosuppression [Unknown]
